FAERS Safety Report 9299873 (Version 2)
Quarter: 2013Q2

REPORT INFORMATION
  Report Type: Spontaneous
  Country: ET (occurrence: ET)
  Receive Date: 20130521
  Receipt Date: 20130528
  Transmission Date: 20140414
  Serious: Yes (Other)
  Sender: FDA-Public Use
  Company Number: ET-MERCK-1305ETH011820

PATIENT
  Sex: 0

DRUGS (1)
  1. NASONEX [Suspect]
     Indication: RHINITIS ALLERGIC
     Dosage: UNK
     Route: 055

REACTIONS (2)
  - Suicide attempt [Unknown]
  - Intentional overdose [Unknown]
